FAERS Safety Report 15058218 (Version 3)
Quarter: 2018Q3

REPORT INFORMATION
  Report Type: Spontaneous
  Country: US (occurrence: US)
  Receive Date: 20180625
  Receipt Date: 20180705
  Transmission Date: 20181010
  Serious: No
  Sender: FDA-Public Use
  Company Number: US-PFIZER INC-2018254739

PATIENT
  Sex: Male

DRUGS (1)
  1. CLINDAMYCIN PHOSPHATE. [Suspect]
     Active Substance: CLINDAMYCIN PHOSPHATE
     Indication: GENITAL RASH
     Dosage: UNK, 1% SOLUTION
     Route: 061

REACTIONS (4)
  - Nocturia [Unknown]
  - Product use in unapproved indication [Unknown]
  - Application site irritation [Unknown]
  - Application site pain [Unknown]
